FAERS Safety Report 21232359 (Version 2)
Quarter: 2022Q3

REPORT INFORMATION
  Report Type: Report from Study
  Country: US (occurrence: US)
  Receive Date: 20220819
  Receipt Date: 20220827
  Transmission Date: 20221027
  Serious: Yes (Hospitalization)
  Sender: FDA-Public Use
  Company Number: US-Accord-273691

PATIENT
  Age: 56 Year
  Sex: Male
  Weight: 91.20 kg

DRUGS (1)
  1. CLOZAPINE [Suspect]
     Active Substance: CLOZAPINE
     Indication: Schizophrenia
     Dosage: 100MG EVERY MORNING AND 500MG EVERY NIGHT
     Route: 048

REACTIONS (3)
  - Psychotic disorder [Recovering/Resolving]
  - Craniocerebral injury [Unknown]
  - Neutropenia [Unknown]

NARRATIVE: CASE EVENT DATE: 20220308
